FAERS Safety Report 17688660 (Version 2)
Quarter: 2020Q2

REPORT INFORMATION
  Report Type: Report from Study
  Country: BR (occurrence: BR)
  Receive Date: 20200421
  Receipt Date: 20200424
  Transmission Date: 20200714
  Serious: Yes (Hospitalization)
  Sender: FDA-Public Use
  Company Number: BR-JNJFOC-20200417229

PATIENT
  Sex: Male
  Weight: 108 kg

DRUGS (5)
  1. STELARA [Suspect]
     Active Substance: USTEKINUMAB
     Indication: PSORIASIS
     Route: 058
     Dates: start: 2019, end: 201909
  2. STELARA [Suspect]
     Active Substance: USTEKINUMAB
  3. SERTRALINE [Concomitant]
     Active Substance: SERTRALINE HYDROCHLORIDE
     Route: 065
  4. CEPHALIN                           /00011001/ [Concomitant]
     Indication: BLOOD PRESSURE ABNORMAL
     Dosage: APPROXIMATELY 3 TO 2 MONTHS.
  5. QUETIAPINE. [Concomitant]
     Active Substance: QUETIAPINE
     Route: 065

REACTIONS (5)
  - Psoriasis [Unknown]
  - Investigation [Unknown]
  - Arthralgia [Not Recovered/Not Resolved]
  - Product dose omission [Unknown]
  - Gastrointestinal infection [Not Recovered/Not Resolved]

NARRATIVE: CASE EVENT DATE: 2020
